FAERS Safety Report 8230210-7 (Version None)
Quarter: 2012Q1

REPORT INFORMATION
  Report Type: 
  Country: None (occurrence: None)
  Receive Date: 20120321
  Receipt Date: 20120321
  Transmission Date: 20120608
  Serious: No
  Sender: FDA-Public Use
  Company Number: None

PATIENT
  Age: 64 Year
  Sex: Male
  Weight: 60.5 kg

DRUGS (1)
  1. CHLORPROMAZINE HCL [Suspect]
     Dosage: 25 MG TID PO
     Route: 048
     Dates: start: 20111024, end: 20111025

REACTIONS (1)
  - LETHARGY [None]
